FAERS Safety Report 12090202 (Version 2)
Quarter: 2016Q1

REPORT INFORMATION
  Report Type: Spontaneous
  Country: US (occurrence: US)
  Receive Date: 20160218
  Receipt Date: 20160331
  Transmission Date: 20160526
  Serious: No
  Sender: FDA-Public Use
  Company Number: US-ELI_LILLY_AND_COMPANY-US201602005366

PATIENT
  Sex: Female

DRUGS (2)
  1. CYMBALTA [Suspect]
     Active Substance: DULOXETINE HYDROCHLORIDE
     Indication: DEPRESSION
     Dosage: UNK, UNKNOWN
     Route: 065
  2. CYMBALTA [Suspect]
     Active Substance: DULOXETINE HYDROCHLORIDE
     Dosage: 60 MG, OTHER
     Route: 065

REACTIONS (13)
  - Tremor [Unknown]
  - Tooth infection [Unknown]
  - Hyperhidrosis [Unknown]
  - Paraesthesia [Unknown]
  - Dysphemia [Unknown]
  - Inappropriate schedule of drug administration [Unknown]
  - Muscle tightness [Unknown]
  - Drug withdrawal syndrome [Unknown]
  - Insomnia [Unknown]
  - Feeling cold [Unknown]
  - Thinking abnormal [Unknown]
  - Visual impairment [Unknown]
  - Nausea [Unknown]

NARRATIVE: CASE EVENT DATE: 2015
